FAERS Safety Report 9705777 (Version 1)
Quarter: 2013Q4

REPORT INFORMATION
  Report Type: Spontaneous
  Country: US (occurrence: US)
  Receive Date: 20131122
  Receipt Date: 20131122
  Transmission Date: 20140711
  Serious: No
  Sender: FDA-Public Use
  Company Number: US-GILEAD-2008-0018054

PATIENT
  Sex: Female
  Weight: 54.88 kg

DRUGS (16)
  1. LETAIRIS [Suspect]
     Indication: PULMONARY ARTERIAL HYPERTENSION
     Route: 048
  2. TYLENOL [Concomitant]
     Route: 048
  3. PREMARIN [Concomitant]
     Route: 048
  4. SYNTHROID [Concomitant]
     Route: 048
  5. GAS-X [Concomitant]
     Route: 048
  6. LOTREL [Concomitant]
     Route: 048
  7. LEVSINEX [Concomitant]
     Route: 048
  8. MICARDIS [Concomitant]
     Route: 048
  9. MSM [Concomitant]
     Route: 048
  10. VISION TABLET [Concomitant]
     Route: 048
  11. CALCIUM [Concomitant]
     Route: 048
  12. VITAMIN B-12 [Concomitant]
     Route: 048
  13. VITAMIN C [Concomitant]
     Route: 048
  14. VITAMIN E [Concomitant]
     Route: 048
  15. MAGNESIUM [Concomitant]
     Route: 048
  16. GINKOBA [Concomitant]
     Route: 048

REACTIONS (1)
  - Laboratory test abnormal [Unknown]
